FAERS Safety Report 4943390-3 (Version None)
Quarter: 2006Q1

REPORT INFORMATION
  Report Type: 
  Country: None (occurrence: None)
  Receive Date: 20060309
  Receipt Date: 20060227
  Transmission Date: 20060701
  Serious: Yes (Other)
  Sender: FDA-Public Use
  Company Number: 2006031057

PATIENT
  Age: 45 Year
  Sex: Male
  Weight: 86.1834 kg

DRUGS (4)
  1. CELEBREX [Suspect]
     Indication: ARTHRITIS
     Dosage: 400 MG (200 MG, 2 IN 1 D)
     Dates: start: 20020101, end: 20030101
  2. BENADRYL [Suspect]
     Indication: ANAPHYLACTIC REACTION
     Dates: start: 20030401
  3. PREDNISONE TAB [Suspect]
     Indication: ANAPHYLACTIC REACTION
     Dates: start: 20030401
  4. EPINEPHRINE [Suspect]
     Indication: ANAPHYLACTIC REACTION
     Dates: start: 20030401

REACTIONS (5)
  - ANAPHYLACTIC REACTION [None]
  - FACIAL SPASM [None]
  - HAND DEFORMITY [None]
  - THORACIC OUTLET SYNDROME [None]
  - URTICARIA [None]
